FAERS Safety Report 6671878-6 (Version None)
Quarter: 2010Q2

REPORT INFORMATION
  Report Type: 
  Country: None (occurrence: None)
  Receive Date: 20100407
  Receipt Date: 20100329
  Transmission Date: 20101027
  Serious: Yes (Other)
  Sender: FDA-Public Use
  Company Number: US-PFIZER INC-2010040466

PATIENT
  Sex: Female
  Weight: 49.433 kg

DRUGS (7)
  1. NICOTROL [Suspect]
     Indication: SMOKING CESSATION THERAPY
     Dosage: UNK
     Dates: start: 20100101
  2. PREMARIN [Concomitant]
     Dosage: UNK
  3. PROTONIX [Concomitant]
     Dosage: 40 MG, UNK
  4. PROPOXYPHENE NAPSYLATE W/ ACETAMINOPHEN [Concomitant]
     Dosage: UNK
  5. PREDNISONE [Concomitant]
     Dosage: 10 MG, UNK
  6. PROMETHAZINE [Concomitant]
     Dosage: FREQUENCY: AS NEEDED,
  7. ALBUTEROL [Concomitant]
     Dosage: UNK

REACTIONS (7)
  - ASTHENIA [None]
  - DIZZINESS [None]
  - DYSPNOEA [None]
  - DYSSTASIA [None]
  - PRESYNCOPE [None]
  - TOBACCO USER [None]
  - WITHDRAWAL SYNDROME [None]
